FAERS Safety Report 24191180 (Version 1)
Quarter: 2024Q3

REPORT INFORMATION
  Report Type: Spontaneous
  Country: JP (occurrence: JP)
  Receive Date: 20240808
  Receipt Date: 20240808
  Transmission Date: 20241017
  Serious: Yes (Hospitalization)
  Sender: PFIZER
  Company Number: JP-PFIZER INC-PV202400101979

PATIENT
  Age: 30 Year
  Sex: Male

DRUGS (1)
  1. METHYLPREDNISOLONE [Suspect]
     Active Substance: METHYLPREDNISOLONE
     Indication: Acute myeloid leukaemia
     Dosage: 4 MG/DAY
     Route: 048

REACTIONS (2)
  - Herpes zoster oticus [Unknown]
  - Cranial nerve disorder [Unknown]
